FAERS Safety Report 7052846-1 (Version None)
Quarter: 2010Q4

REPORT INFORMATION
  Report Type: 
  Country: None (occurrence: None)
  Receive Date: 20101019
  Receipt Date: 20101006
  Transmission Date: 20110411
  Serious: Yes (Other)
  Sender: FDA-Public Use
  Company Number: GB-MYLANLABS-2010S1018621

PATIENT
  Age: 42 Year
  Sex: Male

DRUGS (8)
  1. TRAMADOL [Suspect]
     Indication: BACK PAIN
     Route: 065
  2. CODEINE [Suspect]
     Indication: BACK PAIN
     Route: 065
  3. MORPHINE [Suspect]
     Indication: BACK PAIN
     Route: 065
  4. ASPIRIN [Concomitant]
     Route: 065
  5. PROPRANOLOL [Concomitant]
     Route: 065
  6. OMEPRAZOLE [Concomitant]
     Route: 065
  7. FLUOXETINE [Concomitant]
     Route: 065
  8. LOPERAMIDE [Concomitant]
     Route: 065

REACTIONS (1)
  - SECONDARY HYPOGONADISM [None]
